FAERS Safety Report 7693294-0 (Version None)
Quarter: 2011Q3

REPORT INFORMATION
  Report Type: 
  Country: None (occurrence: None)
  Receive Date: 20110819
  Receipt Date: 20110810
  Transmission Date: 20111222
  Serious: Yes (Hospitalization)
  Sender: FDA-Public Use
  Company Number: PHHY2011FR72306

PATIENT
  Sex: Male

DRUGS (15)
  1. CLOZAPINE [Suspect]
     Dosage: 150 MG
     Dates: start: 20110708
  2. GLUCOPHAGE [Concomitant]
     Dosage: 1000 MG, BID
  3. LOXAPINE HCL [Concomitant]
     Dosage: 50 DRP, TID
  4. CLOZAPINE [Suspect]
     Dosage: 50 MG
     Dates: start: 20110704
  5. CLOZAPINE [Suspect]
     Dosage: 250 MG
     Dates: start: 20110714
  6. CLOZAPINE [Suspect]
     Dosage: 200 MG
     Dates: start: 20110720, end: 20110726
  7. LERCANIDIPINE [Concomitant]
     Dosage: 10 MG, UNK
  8. LOXAPINE HCL [Concomitant]
     Dosage: 50 DROPS, THE NIGHT
  9. CLOZAPINE [Suspect]
     Dosage: 100 MG
     Dates: start: 20110706
  10. ABILIFY [Concomitant]
     Dosage: 30 MG
  11. CLOZAPINE [Suspect]
     Dosage: 25 MG
     Dates: start: 20110630
  12. CLONAZEPAM [Concomitant]
     Dosage: 15 DRP, QID
  13. ABILIFY [Concomitant]
     Dosage: 20 MG
     Dates: start: 20110707
  14. ABILIFY [Concomitant]
     Dosage: 10 MG
     Dates: start: 20110715, end: 20110722
  15. CRESTOR [Concomitant]
     Dosage: 5 MG, UNK

REACTIONS (17)
  - VERTIGO [None]
  - TACHYCARDIA [None]
  - FEBRILE CONVULSION [None]
  - EXTRAPYRAMIDAL DISORDER [None]
  - ERYTHEMA [None]
  - CONFUSIONAL STATE [None]
  - TENDONITIS [None]
  - MOVEMENT DISORDER [None]
  - MONOCYTE COUNT INCREASED [None]
  - LEUKOCYTOSIS [None]
  - TENDON CALCIFICATION [None]
  - ANXIETY [None]
  - ORTHOSTATIC HYPOTENSION [None]
  - LYMPHOCYTE COUNT ABNORMAL [None]
  - EOSINOPHILIA [None]
  - NEUTROPHIL COUNT INCREASED [None]
  - C-REACTIVE PROTEIN INCREASED [None]
